FAERS Safety Report 4737020-3 (Version None)
Quarter: 2005Q3

REPORT INFORMATION
  Report Type: 
  Country: None (occurrence: None)
  Receive Date: 20050804
  Receipt Date: 20050121
  Transmission Date: 20060218
  Serious: Yes (Life-Threatening, Hospitalization, Disabling, Other)
  Sender: FDA-Public Use
  Company Number: 805#1#2005-00001

PATIENT
  Age: 1 Day
  Sex: Female

DRUGS (3)
  1. ALPROSTADIL [Suspect]
     Indication: HEART DISEASE CONGENITAL
     Dosage: 10 NG/KG/MIN (10NG/KG/MIN 1 IN 1 DAY(S))
     Route: 041
     Dates: start: 20050103, end: 20050103
  2. VENCURONIUM-BROMIDE [Concomitant]
  3. MIDAZOLAM [Concomitant]

REACTIONS (2)
  - APNOEIC ATTACK [None]
  - TRUNCUS ARTERIOSUS PERSISTENT [None]
